FAERS Safety Report 6033078-2 (Version None)
Quarter: 2009Q1

REPORT INFORMATION
  Report Type: 
  Country: None (occurrence: None)
  Receive Date: 20090105
  Receipt Date: 20071203
  Transmission Date: 20090719
  Serious: Yes (Other)
  Sender: FDA-Public Use
  Company Number: BDI-010650

PATIENT
  Age: 31 Year
  Sex: Female
  Weight: 136 kg

DRUGS (5)
  1. MULTIHANCE [Suspect]
     Indication: BACK PAIN
     Dosage: 20ML ONCE , INTRAVENOUS (NOT OTHERWISE SPECIFIED)
     Route: 042
     Dates: start: 20071130, end: 20071130
  2. MULTIHANCE [Suspect]
     Indication: NUCLEAR MAGNETIC RESONANCE IMAGING
     Dosage: 20ML ONCE , INTRAVENOUS (NOT OTHERWISE SPECIFIED)
     Route: 042
     Dates: start: 20071130, end: 20071130
  3. CEPACOL (CETYLPYRIDINIUM CHLORIDE) [Concomitant]
  4. SULFA (CLIOQUINOL;PAPAVERINE HYDROCHLORIDE; SULFAGUANIDINE;VITAMINS NO [Concomitant]
  5. PENNICILLIN (PENICILLIN NOS) [Concomitant]

REACTIONS (5)
  - ABDOMINAL PAIN [None]
  - DYSPNOEA [None]
  - RASH [None]
  - VOMITING [None]
  - WHEEZING [None]
